FAERS Safety Report 17096847 (Version 3)
Quarter: 2020Q1

REPORT INFORMATION
  Report Type: Spontaneous
  Country: US (occurrence: US)
  Receive Date: 20191202
  Receipt Date: 20200113
  Transmission Date: 20200409
  Serious: No
  Sender: FDA-Public Use
  Company Number: US-SHIRE-US201941237

PATIENT
  Sex: Female
  Weight: 74.38 kg

DRUGS (4)
  1. XIIDRA [Suspect]
     Active Substance: LIFITEGRAST
     Dosage: 50 MILLIGRAM, 2X/DAY:BID
     Route: 003
     Dates: start: 20191010, end: 20191110
  2. CLONIDINE. [Concomitant]
     Active Substance: CLONIDINE
     Indication: BLOOD PRESSURE ABNORMAL
  3. TRIAMTERENE HCTZ [Concomitant]
     Active Substance: HYDROCHLOROTHIAZIDE\TRIAMTERENE
     Indication: PRODUCT USED FOR UNKNOWN INDICATION
  4. XIIDRA [Suspect]
     Active Substance: LIFITEGRAST
     Indication: DRY EYE
     Dosage: 5 PERCENT, 2X/DAY:BID
     Route: 047
     Dates: start: 2019, end: 20191013

REACTIONS (6)
  - Incorrect route of product administration [Unknown]
  - Visual impairment [Unknown]
  - Body height decreased [Not Recovered/Not Resolved]
  - Rash [Recovering/Resolving]
  - Chalazion [Unknown]
  - Blister [Unknown]

NARRATIVE: CASE EVENT DATE: 2019
